FAERS Safety Report 6264936-1 (Version None)
Quarter: 2009Q3

REPORT INFORMATION
  Report Type: 
  Country: None (occurrence: None)
  Receive Date: 20090709
  Receipt Date: 20090709
  Transmission Date: 20100115
  Serious: Yes (Other)
  Sender: FDA-Public Use
  Company Number: None

PATIENT
  Sex: Male
  Weight: 97.0698 kg

DRUGS (1)
  1. CLINDAMYCIN HCL [Suspect]
     Indication: INFECTION PROPHYLAXIS
     Dosage: 2 CAPSULES TWICE DAILY BY MOUTH
     Route: 048
     Dates: start: 20090521, end: 20090526

REACTIONS (1)
  - CLOSTRIDIUM DIFFICILE COLITIS [None]
